FAERS Safety Report 5581330-7 (Version None)
Quarter: 2008Q1

REPORT INFORMATION
  Report Type: 
  Country: None (occurrence: None)
  Receive Date: 20080104
  Receipt Date: 20071228
  Transmission Date: 20080703
  Serious: Yes (Hospitalization)
  Sender: FDA-Public Use
  Company Number: PHRM2007FR02903

PATIENT
  Age: 54 Year
  Sex: Male

DRUGS (5)
  1. NEORAL [Suspect]
     Indication: STEM CELL TRANSPLANT
     Dosage: 175 MG, BID
     Route: 048
     Dates: start: 20070417
  2. MABTHERA [Suspect]
     Dosage: 375 MG/M2 PER DAY
     Route: 042
     Dates: start: 20070613, end: 20070704
  3. ALKERAN [Concomitant]
     Dates: start: 20050105, end: 20070330
  4. FLUDARA [Concomitant]
     Dosage: 25 MG/M2
     Route: 042
     Dates: start: 20070401, end: 20070402
  5. VELCADE [Concomitant]
     Dosage: 1.3 MG/M2
     Route: 042
     Dates: start: 20040426, end: 20040614

REACTIONS (21)
  - ALANINE AMINOTRANSFERASE INCREASED [None]
  - ASPARTATE AMINOTRANSFERASE INCREASED [None]
  - BLOOD ALKALINE PHOSPHATASE INCREASED [None]
  - BLOOD CREATININE INCREASED [None]
  - BRAIN NATRIURETIC PEPTIDE INCREASED [None]
  - C-REACTIVE PROTEIN INCREASED [None]
  - CARDIAC FAILURE [None]
  - CARDIOMYOPATHY [None]
  - CYTOLYTIC HEPATITIS [None]
  - CYTOMEGALOVIRUS VIRAEMIA [None]
  - DYSPNOEA [None]
  - EJECTION FRACTION DECREASED [None]
  - EPSTEIN-BARR VIRAEMIA [None]
  - GAMMA-GLUTAMYLTRANSFERASE INCREASED [None]
  - MITRAL VALVE INCOMPETENCE [None]
  - MYOCARDIAL ISCHAEMIA [None]
  - MYOGLOBIN BLOOD INCREASED [None]
  - OEDEMA PERIPHERAL [None]
  - PLEURAL EFFUSION [None]
  - RENAL FAILURE [None]
  - TROPONIN INCREASED [None]
